FAERS Safety Report 7986858-8 (Version None)
Quarter: 2011Q4

REPORT INFORMATION
  Report Type: 
  Country: None (occurrence: None)
  Receive Date: 20111216
  Receipt Date: 20110225
  Transmission Date: 20120403
  Serious: Yes (Hospitalization)
  Sender: FDA-Public Use
  Company Number: US-BRISTOL-MYERS SQUIBB COMPANY-15578396

PATIENT
  Age: 10 Year
  Sex: Male

DRUGS (2)
  1. BENADRYL [Concomitant]
     Indication: HYPERSENSITIVITY
     Route: 042
  2. ABILIFY [Suspect]
     Dosage: STARTED ONE YEAR AGO

REACTIONS (1)
  - DYSTONIA [None]
